FAERS Safety Report 10057545 (Version 4)
Quarter: 2014Q2

REPORT INFORMATION
  Report Type: Spontaneous
  Country: US (occurrence: US)
  Receive Date: 20140404
  Receipt Date: 20140627
  Transmission Date: 20141212
  Serious: No
  Sender: FDA-Public Use
  Company Number: US-009507513-1404USA002046

PATIENT
  Age: 36 Year
  Sex: Female
  Weight: 108.84 kg

DRUGS (2)
  1. NUVARING [Suspect]
     Indication: MENSTRUATION IRREGULAR
     Dosage: 3 WEEKS IN, ONE WEEK OUT, ONE RING
     Route: 067
     Dates: start: 2004
  2. NUVARING [Suspect]
     Indication: CONTRACEPTION

REACTIONS (2)
  - Device expulsion [Unknown]
  - Product quality issue [Unknown]
